FAERS Safety Report 6304071-7 (Version None)
Quarter: 2009Q3

REPORT INFORMATION
  Report Type: 
  Country: None (occurrence: None)
  Receive Date: 20090810
  Receipt Date: 20090810
  Transmission Date: 20100115
  Serious: Yes (Other)
  Sender: FDA-Public Use
  Company Number: None

PATIENT
  Age: 44 Year
  Sex: Female
  Weight: 81.6475 kg

DRUGS (2)
  1. TRAZODONE HCL [Suspect]
     Indication: DEPRESSION
     Dosage: 50 ONCE A NIGHT PO
     Route: 048
  2. ADVAIR HFA [Suspect]

REACTIONS (7)
  - ASTHMA [None]
  - ECONOMIC PROBLEM [None]
  - FURUNCLE [None]
  - INTERVERTEBRAL DISC PROTRUSION [None]
  - NASAL CONGESTION [None]
  - POOR QUALITY SLEEP [None]
  - WHEEZING [None]
